FAERS Safety Report 4433942-1 (Version None)
Quarter: 2004Q3

REPORT INFORMATION
  Report Type: 
  Country: None (occurrence: None)
  Receive Date: 20040825
  Receipt Date: 20040810
  Transmission Date: 20050211
  Serious: Yes (Other)
  Sender: FDA-Public Use
  Company Number: 2004-BP-05969AU

PATIENT
  Age: 56 Year
  Sex: Female

DRUGS (3)
  1. MOBIC [Suspect]
     Indication: POST PROCEDURAL PAIN
     Dosage: 15 MG (15MG, 15MG ONCE DAILY); PO
     Route: 048
     Dates: start: 20040710, end: 20040710
  2. MOBIC [Suspect]
     Indication: SPINAL OPERATION
     Dosage: 15 MG (15MG, 15MG ONCE DAILY); PO
     Route: 048
     Dates: start: 20040710, end: 20040710
  3. ATIVAN [Concomitant]

REACTIONS (4)
  - BLISTER [None]
  - FLUSHING [None]
  - IRRITABILITY [None]
  - SWELLING FACE [None]
